FAERS Safety Report 4988474-9 (Version None)
Quarter: 2006Q2

REPORT INFORMATION
  Report Type: 
  Country: None (occurrence: None)
  Receive Date: 20060502
  Receipt Date: 20060501
  Transmission Date: 20061013
  Serious: Yes (Hospitalization)
  Sender: FDA-Public Use
  Company Number: 2006036235S

PATIENT
  Age: 63 Year
  Sex: Female

DRUGS (2)
  1. NICODERM CQ [Suspect]
     Route: 062
  2. NICOTROL [Suspect]
     Route: 055
     Dates: start: 20060224, end: 20060305

REACTIONS (2)
  - CHEST DISCOMFORT [None]
  - CHEST PAIN [None]
